FAERS Safety Report 14934305 (Version 1)
Quarter: 2018Q2

REPORT INFORMATION
  Report Type: Spontaneous
  Country: US (occurrence: US)
  Receive Date: 20180505
  Receipt Date: 20180505
  Transmission Date: 20180711
  Serious: No
  Sender: FDA-Public Use
  Company Number: None

PATIENT
  Age: 43 Year
  Sex: Female
  Weight: 81 kg

DRUGS (1)
  1. REESE^S PINWORM MEDICINE [Suspect]
     Active Substance: PYRANTEL PAMOATE
     Dosage: ?          QUANTITY:3.5 TEASPOON(S);?
     Route: 048
     Dates: start: 20180504, end: 20180504

REACTIONS (3)
  - Diarrhoea [None]
  - Urticaria [None]
  - Swelling face [None]

NARRATIVE: CASE EVENT DATE: 20180505
